FAERS Safety Report 7374300-X (Version None)
Quarter: 2011Q1

REPORT INFORMATION
  Report Type: 
  Country: None (occurrence: None)
  Receive Date: 20110315
  Receipt Date: 20110228
  Transmission Date: 20110831
  Serious: Yes (Hospitalization, Disabling, Other)
  Sender: FDA-Public Use
  Company Number: 2010-3906

PATIENT
  Age: 80 Year
  Sex: Female

DRUGS (5)
  1. LERCANIDIPINE [Suspect]
     Indication: HYPERTENSION
  2. METHIMAZOLE [Concomitant]
  3. OCTREOTIDE ACETATE [Concomitant]
  4. LOSARTAN/HYDROCHLOTIAZIDE (HYZAAR) [Concomitant]
  5. SOMATULINE DEPOT [Suspect]
     Indication: ACROMEGALY
     Dosage: 60 MG (60 MG, EVERY 4 TO 6 WEEKS), SUBCUTANEOUS
     Route: 058
     Dates: start: 20050928, end: 20051208

REACTIONS (8)
  - HAEMORRHAGIC STROKE [None]
  - INJECTION SITE INDURATION [None]
  - INJECTION SITE NECROSIS [None]
  - INJECTION SITE PAIN [None]
  - MYOCARDIAL INFARCTION [None]
  - BACTERIAL INFECTION [None]
  - INJECTION SITE ULCER [None]
  - GASTROINTESTINAL DISORDER [None]
